FAERS Safety Report 8425562-9 (Version None)
Quarter: 2012Q2

REPORT INFORMATION
  Report Type: 
  Country: None (occurrence: None)
  Receive Date: 20120611
  Receipt Date: 20120530
  Transmission Date: 20120825
  Serious: Yes (Other)
  Sender: FDA-Public Use
  Company Number: JP-ELI_LILLY_AND_COMPANY-JP201205000374

PATIENT
  Sex: Female

DRUGS (14)
  1. SULFAMETHOXAZOLE AND TRIMETHOPRIM [Concomitant]
     Dosage: UNK
     Route: 048
     Dates: start: 20111104, end: 20111202
  2. RABEPRAZOLE SODIUM [Concomitant]
     Dosage: UNK
  3. DICLOFENAC SODIUM [Concomitant]
     Indication: PAIN
     Dosage: UNK
     Route: 054
     Dates: start: 20111013, end: 20111020
  4. WARFARIN [Concomitant]
     Dosage: UNK
     Route: 048
  5. LIVALO [Concomitant]
     Dosage: UNK
  6. AMLODIPINE [Concomitant]
     Dosage: UNK
     Route: 048
  7. ELCITONIN [Concomitant]
     Indication: PAIN
     Dosage: UNK
     Route: 030
     Dates: start: 20111013, end: 20120407
  8. ALENDRONATE SODIUM [Concomitant]
     Indication: OSTEOPOROSIS
     Dosage: UNK
     Dates: start: 20090608
  9. MAGLAX [Concomitant]
     Dosage: UNK
     Route: 048
  10. BASEN [Concomitant]
     Dosage: UNK
     Route: 048
  11. PREDNISOLONE [Concomitant]
     Indication: TEMPORAL ARTERITIS
     Dosage: UNK
     Route: 048
  12. FORTEO [Suspect]
     Indication: OSTEOPOROSIS
     Dosage: 20 UG, QD
     Route: 058
     Dates: start: 20111020, end: 20111104
  13. ALFAROL [Concomitant]
     Dosage: UNK
     Route: 048
  14. ALENDRONATE SODIUM [Concomitant]
     Dosage: UNK
     Route: 048

REACTIONS (1)
  - HEPATIC FUNCTION ABNORMAL [None]
